FAERS Safety Report 16862623 (Version 2)
Quarter: 2020Q1

REPORT INFORMATION
  Report Type: Spontaneous
  Country: US (occurrence: US)
  Receive Date: 20190927
  Receipt Date: 20200306
  Transmission Date: 20200409
  Serious: No
  Sender: FDA-Public Use
  Company Number: US-TEVA-2019-US-1107071

PATIENT
  Age: 81 Year
  Sex: Male

DRUGS (6)
  1. AUSTEDO [Suspect]
     Active Substance: DEUTETRABENAZINE
     Indication: MOVEMENT DISORDER
     Dosage: 6 MILLIGRAM DAILY;
     Route: 048
     Dates: start: 20190907, end: 20190917
  2. LIPITOR [Concomitant]
     Active Substance: ATORVASTATIN CALCIUM
     Dosage: 40 MG
  3. AVODART [Concomitant]
     Active Substance: DUTASTERIDE
     Dosage: 0.5 MG
  4. ZOLOFT [Concomitant]
     Active Substance: SERTRALINE HYDROCHLORIDE
     Dosage: 125 MG
  5. LORAZEPAM. [Concomitant]
     Active Substance: LORAZEPAM
     Dosage: 0.5 MG
  6. ASPIRIN. [Concomitant]
     Active Substance: ASPIRIN
     Dosage: 81 MG

REACTIONS (6)
  - Blood pressure increased [Unknown]
  - Somnolence [Not Recovered/Not Resolved]
  - Heart rate abnormal [Unknown]
  - Insomnia [Unknown]
  - Balance disorder [Not Recovered/Not Resolved]
  - Dizziness [Not Recovered/Not Resolved]

NARRATIVE: CASE EVENT DATE: 201909
